FAERS Safety Report 17610861 (Version 1)
Quarter: 2020Q1

REPORT INFORMATION
  Report Type: Spontaneous
  Country: US (occurrence: US)
  Receive Date: 20200330
  Receipt Date: 20200330
  Transmission Date: 20200409
  Serious: Yes (Other)
  Sender: FDA-Public Use
  Company Number: None

PATIENT
  Age: 90 Year
  Sex: Male
  Weight: 81 kg

DRUGS (1)
  1. TROSPIUM (TROSPIM CL 20MG TAB) [Suspect]
     Active Substance: TROSPIUM CHLORIDE
     Indication: URINARY INCONTINENCE
     Dates: start: 20200116, end: 20200130

REACTIONS (3)
  - Chest pain [None]
  - Hypertension [None]
  - Pain in extremity [None]

NARRATIVE: CASE EVENT DATE: 20200124
